FAERS Safety Report 7009868-6 (Version None)
Quarter: 2010Q3

REPORT INFORMATION
  Report Type: 
  Country: None (occurrence: None)
  Receive Date: 20100923
  Receipt Date: 20100916
  Transmission Date: 20110219
  Serious: Yes (Hospitalization, Other)
  Sender: FDA-Public Use
  Company Number: PL-ROCHE-727822

PATIENT
  Age: 29 Year
  Sex: Male

DRUGS (4)
  1. CELLCEPT [Suspect]
     Indication: TRANSPLANT
     Dosage: FREQUENCY: 2000 MGXDAY
     Route: 065
  2. CYMEVENE [Suspect]
     Indication: TRANSPLANT
     Route: 065
  3. VALCYTE [Suspect]
     Indication: TRANSPLANT
     Route: 065
  4. TACROLIMUS [Concomitant]

REACTIONS (10)
  - ABDOMINAL PAIN [None]
  - ABDOMINAL PAIN UPPER [None]
  - ANAEMIA [None]
  - ASTHENIA [None]
  - CYTOMEGALOVIRUS INFECTION [None]
  - GASTRIC DISORDER [None]
  - MALAISE [None]
  - RASH MACULAR [None]
  - TRANSPLANT REJECTION [None]
  - WHITE BLOOD CELL COUNT INCREASED [None]
